FAERS Safety Report 8256462-5 (Version None)
Quarter: 2012Q2

REPORT INFORMATION
  Report Type: 
  Country: None (occurrence: None)
  Receive Date: 20120403
  Receipt Date: 20120328
  Transmission Date: 20120825
  Serious: Yes (Other)
  Sender: FDA-Public Use
  Company Number: US-ABBOTT-12P-163-0903570-00

PATIENT
  Age: 24 Year
  Sex: Male

DRUGS (4)
  1. PROZAC [Concomitant]
     Indication: ANXIETY
  2. AZATHIOPRINE [Concomitant]
     Indication: PRODUCT USED FOR UNKNOWN INDICATION
     Dates: start: 20080101
  3. HUMIRA [Suspect]
     Indication: CROHN'S DISEASE
     Dates: start: 20080101
  4. PROZAC [Concomitant]
     Indication: STRESS

REACTIONS (4)
  - STRESS [None]
  - ANXIETY [None]
  - CROHN'S DISEASE [None]
  - T-CELL LYMPHOMA [None]
